FAERS Safety Report 20179545 (Version 1)
Quarter: 2021Q4

REPORT INFORMATION
  Report Type: Spontaneous
  Country: CA (occurrence: CA)
  Receive Date: 20211214
  Receipt Date: 20211214
  Transmission Date: 20220303
  Serious: Yes (Other)
  Sender: FDA-Public Use
  Company Number: CA-TEVA-2021-CA-1986453

PATIENT
  Age: 46 Year
  Sex: Female

DRUGS (1)
  1. BUPROPION [Suspect]
     Active Substance: BUPROPION
     Dosage: 300 MILLIGRAM DAILY;
     Route: 065

REACTIONS (4)
  - Anxiety [Recovered/Resolved]
  - Depression [Recovered/Resolved]
  - Mental impairment [Recovered/Resolved]
  - Product substitution issue [Recovered/Resolved]
